FAERS Safety Report 6127263-9 (Version None)
Quarter: 2009Q1

REPORT INFORMATION
  Report Type: 
  Country: None (occurrence: None)
  Receive Date: 20090319
  Receipt Date: 20090305
  Transmission Date: 20090719
  Serious: Yes (Hospitalization)
  Sender: FDA-Public Use
  Company Number: 02100-JPN-07-0677

PATIENT
  Age: 76 Year
  Sex: Female

DRUGS (13)
  1. PLAVIX [Suspect]
     Indication: CEREBRAL INFARCTION
     Dosage: 75 MG, DAILY DOSE,  ORAL
     Route: 048
     Dates: start: 20070824, end: 20080319
  2. ASPIRIN [Concomitant]
  3. CARVEDILOL [Concomitant]
  4. CITICOLINE (CITICOLINE) [Concomitant]
  5. ATORVASTATIN CALCIUM [Concomitant]
  6. MAGNESIUM OXIDE (MAGNESIUM OXIDE) [Concomitant]
  7. CALCIUM POLYCARBOPHIL (CALCIUM POLYCARBOPHIL) [Concomitant]
  8. ANYTAL (MADE BY AIN-GOOK) (ANYTAL (MADE BY AHN-GOOK)) TABLET [Concomitant]
  9. EPROSARTAN (EPROSARTAN) [Concomitant]
  10. RANITIDINE [Concomitant]
  11. CALCIUM CARBONATE (CALCIUM CARBONATE) [Concomitant]
  12. CHOLECALCIFEROL (CHOLECALCIFEROL) [Concomitant]
  13. RISEDRONATE SODIUM [Concomitant]

REACTIONS (4)
  - ASTHENIA [None]
  - COMPRESSION FRACTURE [None]
  - DYSARTHRIA [None]
  - FALL [None]
